FAERS Safety Report 5010554-2 (Version None)
Quarter: 2006Q2

REPORT INFORMATION
  Report Type: 
  Country: None (occurrence: None)
  Receive Date: 20060523
  Receipt Date: 20060523
  Transmission Date: 20061013
  Serious: Yes (Hospitalization)
  Sender: FDA-Public Use
  Company Number: None

PATIENT
  Age: 83 Year
  Sex: Female

DRUGS (9)
  1. MEGACE [Suspect]
     Indication: WEIGHT DECREASED
     Dosage: 800MG QD PO
     Route: 048
     Dates: start: 20060103, end: 20060328
  2. NORVASC [Concomitant]
  3. LIPITOR [Concomitant]
  4. SYNTHROID [Concomitant]
  5. PERCOCET [Concomitant]
  6. OXYCONTIN [Concomitant]
  7. ZOFRAN [Concomitant]
  8. ANZEMET [Concomitant]
  9. COMPAZINE [Concomitant]

REACTIONS (5)
  - CONFUSIONAL STATE [None]
  - DIZZINESS [None]
  - GENERAL PHYSICAL HEALTH DETERIORATION [None]
  - METASTASES TO CENTRAL NERVOUS SYSTEM [None]
  - MOOD ALTERED [None]
